FAERS Safety Report 9822774 (Version 2)
Quarter: 2014Q1

REPORT INFORMATION
  Report Type: Report from Study
  Country: US (occurrence: US)
  Receive Date: 20140116
  Receipt Date: 20140204
  Transmission Date: 20141002
  Serious: Yes (Disabling)
  Sender: FDA-Public Use
  Company Number: US-ROCHE-1333651

PATIENT
  Sex: Female

DRUGS (6)
  1. LUCENTIS [Suspect]
     Indication: RETINAL VEIN OCCLUSION
     Route: 050
     Dates: start: 20120313
  2. SYNTHROID [Concomitant]
     Indication: HYPOTHYROIDISM
     Route: 048
  3. QUINAPRIL [Concomitant]
     Indication: HYPERTENSION
     Route: 048
  4. NEURONTIN (UNITED STATES) [Concomitant]
     Indication: POST HERPETIC NEURALGIA
  5. TYLENOL [Concomitant]
     Indication: PAIN
     Route: 048
  6. FISH OIL [Concomitant]
     Route: 048

REACTIONS (3)
  - Cerebrovascular accident [Unknown]
  - Hypoacusis [Unknown]
  - Aphasia [Unknown]
